FAERS Safety Report 8156142-0 (Version None)
Quarter: 2012Q1

REPORT INFORMATION
  Report Type: 
  Country: None (occurrence: None)
  Receive Date: 20120221
  Receipt Date: 20120221
  Transmission Date: 20120608
  Serious: Yes (Other)
  Sender: FDA-Public Use
  Company Number: None

PATIENT
  Sex: Male
  Weight: 158.759 kg

DRUGS (1)
  1. RISPERIDONE [Suspect]
     Dosage: 4 MG ONE PO DLY MONTH OF JANUARY 17 2012; JANUARY 30 1012
     Route: 048

REACTIONS (4)
  - SOCIAL AVOIDANT BEHAVIOUR [None]
  - ANGER [None]
  - PRODUCT SUBSTITUTION ISSUE [None]
  - DEPRESSION [None]
